FAERS Safety Report 4969039-1 (Version None)
Quarter: 2006Q2

REPORT INFORMATION
  Report Type: 
  Country: None (occurrence: None)
  Receive Date: 20060411
  Receipt Date: 20050414
  Transmission Date: 20061013
  Serious: Yes (Hospitalization, Other)
  Sender: FDA-Public Use
  Company Number: US-MERCK-0504USA03103

PATIENT
  Age: 61 Year
  Sex: Female
  Weight: 122 kg

DRUGS (1)
  1. VIOXX [Suspect]
     Indication: ARTHRALGIA
     Route: 048
     Dates: start: 20020101, end: 20020101

REACTIONS (8)
  - ANXIETY [None]
  - CARDIAC DISORDER [None]
  - CHEST PAIN [None]
  - EMOTIONAL DISTRESS [None]
  - HEART RATE INCREASED [None]
  - INJURY [None]
  - KIDNEY INFECTION [None]
  - MYOCARDIAL INFARCTION [None]
